FAERS Safety Report 25111930 (Version 1)
Quarter: 2025Q1

REPORT INFORMATION
  Report Type: Report from Study
  Country: GB (occurrence: GB)
  Receive Date: 20250324
  Receipt Date: 20250324
  Transmission Date: 20250409
  Serious: Yes (Other)
  Sender: ROCHE
  Company Number: GB-ROCHE-10000238463

PATIENT

DRUGS (1)
  1. FARICIMAB [Suspect]
     Active Substance: FARICIMAB
     Indication: Neovascular age-related macular degeneration
     Route: 050

REACTIONS (15)
  - Conjunctival haemorrhage [Unknown]
  - Vitreous floaters [Unknown]
  - Visual impairment [Unknown]
  - Cerebrovascular accident [Unknown]
  - Atrial fibrillation [Unknown]
  - Migraine [Unknown]
  - Dizziness [Unknown]
  - Dry mouth [Unknown]
  - Corneal epithelium defect [Unknown]
  - Eye pain [Unknown]
  - Photopsia [Unknown]
  - Eye abrasion [Unknown]
  - Uveitis [Unknown]
  - Periorbital swelling [Unknown]
  - Photophobia [Unknown]
